FAERS Safety Report 10031295 (Version 1)
Quarter: 2014Q1

REPORT INFORMATION
  Report Type: Spontaneous
  Country: FR (occurrence: FR)
  Receive Date: 20140324
  Receipt Date: 20140324
  Transmission Date: 20141002
  Serious: Yes (Hospitalization, Other)
  Sender: FDA-Public Use
  Company Number: FR-BRISTOL-MYERS SQUIBB COMPANY-20551412

PATIENT
  Age: 81 Year
  Sex: Female

DRUGS (5)
  1. HYDREA CAPS 500 MG [Suspect]
     Indication: ESSENTIAL THROMBOCYTHAEMIA
     Route: 048
     Dates: start: 20140106, end: 20140207
  2. COSOPT [Concomitant]
  3. KARDEGIC [Concomitant]
  4. OFLOXACIN [Concomitant]
  5. LASILIX [Concomitant]
     Route: 042

REACTIONS (7)
  - Pyrexia [Recovered/Resolved]
  - Urinary tract infection bacterial [Unknown]
  - Myalgia [Unknown]
  - General physical health deterioration [Unknown]
  - Decreased appetite [Unknown]
  - Acute pulmonary oedema [Unknown]
  - Aortic bruit [Unknown]
